FAERS Safety Report 6217241-3 (Version None)
Quarter: 2009Q2

REPORT INFORMATION
  Report Type: 
  Country: None (occurrence: None)
  Receive Date: 20090608
  Receipt Date: 20090526
  Transmission Date: 20091009
  Serious: Yes (Other)
  Sender: FDA-Public Use
  Company Number: GB-PFIZER INC-2009217790

PATIENT

DRUGS (1)
  1. SULFASALAZINE [Suspect]
     Dosage: 500 MG, 2X/DAY
     Dates: start: 20090101

REACTIONS (1)
  - ERECTILE DYSFUNCTION [None]
